FAERS Safety Report 13014537 (Version 4)
Quarter: 2017Q2

REPORT INFORMATION
  Report Type: Spontaneous
  Country: US (occurrence: US)
  Receive Date: 20161209
  Receipt Date: 20170519
  Transmission Date: 20170830
  Serious: Yes (Hospitalization, Disabling)
  Sender: FDA-Public Use
  Company Number: US-KVK-TECH, INC-1060637

PATIENT
  Age: 40 Year
  Sex: Female

DRUGS (1)
  1. PHENTERMINE HYDROCHLORIDE. [Suspect]
     Active Substance: PHENTERMINE HYDROCHLORIDE
     Indication: OVERWEIGHT
     Route: 048
     Dates: start: 201610

REACTIONS (5)
  - Hospitalisation [Recovered/Resolved]
  - Head discomfort [Recovered/Resolved]
  - Vasculitis cerebral [Recovering/Resolving]
  - Headache [Recovered/Resolved]
  - Headache [Not Recovered/Not Resolved]

NARRATIVE: CASE EVENT DATE: 2016
